FAERS Safety Report 6616136-0 (Version None)
Quarter: 2010Q1

REPORT INFORMATION
  Report Type: 
  Country: None (occurrence: None)
  Receive Date: 20100305
  Receipt Date: 20100224
  Transmission Date: 20100710
  Serious: Yes (Hospitalization, Other)
  Sender: FDA-Public Use
  Company Number: PHHY2009KR60152

PATIENT
  Age: 24 Year
  Sex: Female

DRUGS (3)
  1. CLOZAPINE [Suspect]
     Dosage: 3 G, UNK
     Route: 048
  2. RISPERIDONE [Suspect]
     Dosage: 30 MG
  3. ANTIDEPRESSANTS [Concomitant]

REACTIONS (16)
  - ALLODYNIA [None]
  - ANTIPSYCHOTIC DRUG LEVEL INCREASED [None]
  - BLOOD CREATINE PHOSPHOKINASE INCREASED [None]
  - BLOOD PRESSURE INCREASED [None]
  - DISORIENTATION [None]
  - HEART RATE INCREASED [None]
  - MENTAL STATUS CHANGES [None]
  - OVERDOSE [None]
  - PCO2 DECREASED [None]
  - PLATELET COUNT INCREASED [None]
  - PO2 INCREASED [None]
  - SPEECH DISORDER [None]
  - STUPOR [None]
  - SUICIDE ATTEMPT [None]
  - TACHYCARDIA [None]
  - WHITE BLOOD CELL COUNT INCREASED [None]
